FAERS Safety Report 9921858 (Version 1)
Quarter: 2014Q1

REPORT INFORMATION
  Report Type: Spontaneous
  Country: US (occurrence: None)
  Receive Date: 20140221
  Receipt Date: 20140221
  Transmission Date: 20141002
  Serious: Yes (Other)
  Sender: FDA-Public Use
  Company Number: None

PATIENT
  Age: 59 None
  Sex: Female
  Weight: 128 kg

DRUGS (1)
  1. ATELVIA [Suspect]
     Indication: OSTEOPOROSIS
     Dosage: 1 PILL Q WEEKLY
     Route: 048
     Dates: start: 20040215, end: 20140215

REACTIONS (2)
  - Abdominal pain [None]
  - Abdominal pain [None]
